FAERS Safety Report 7072793-9 (Version None)
Quarter: 2010Q4

REPORT INFORMATION
  Report Type: 
  Country: None (occurrence: None)
  Receive Date: 20101029
  Receipt Date: 20100315
  Transmission Date: 20110411
  Serious: No
  Sender: FDA-Public Use
  Company Number: A0850236A

PATIENT
  Age: 74 Year
  Sex: Female

DRUGS (5)
  1. ADVAIR DISKUS 100/50 [Suspect]
     Indication: CHRONIC OBSTRUCTIVE PULMONARY DISEASE
     Dosage: 1PUFF TWICE PER DAY
     Route: 055
     Dates: start: 20100101
  2. CRESTOR [Concomitant]
  3. PLAVIX [Concomitant]
  4. SYNTHROID [Concomitant]
  5. GLUCOSAMINE [Concomitant]

REACTIONS (1)
  - DYSPHONIA [None]
